FAERS Safety Report 8239574-1 (Version None)
Quarter: 2012Q1

REPORT INFORMATION
  Report Type: 
  Country: None (occurrence: None)
  Receive Date: 20120328
  Receipt Date: 20120323
  Transmission Date: 20120608
  Serious: Yes (Other)
  Sender: FDA-Public Use
  Company Number: US-JNJFOC-20120308480

PATIENT
  Sex: Female
  Weight: 123.83 kg

DRUGS (7)
  1. CELEXA [Concomitant]
  2. ARTHROTEC [Concomitant]
  3. DEXILANT [Concomitant]
  4. VYTORIN [Concomitant]
  5. VANOS [Concomitant]
  6. USTEKINUMAB [Suspect]
     Indication: PSORIASIS
     Route: 058
     Dates: start: 20100401
  7. ALPRAZOLAM [Concomitant]

REACTIONS (4)
  - SARCOIDOSIS [None]
  - VISUAL IMPAIRMENT [None]
  - CHEST PAIN [None]
  - SINUS DISORDER [None]
